FAERS Safety Report 11709172 (Version 1)
Quarter: 2015Q4

REPORT INFORMATION
  Report Type: Spontaneous
  Country: US (occurrence: US)
  Receive Date: 20151104
  Receipt Date: 20151104
  Transmission Date: 20160304
  Serious: No
  Sender: FDA-Public Use
  Company Number: US-ELI_LILLY_AND_COMPANY-US201103004555

PATIENT
  Age: 73 Year
  Sex: Female

DRUGS (1)
  1. FORTEO [Suspect]
     Active Substance: TERIPARATIDE
     Indication: OSTEOPOROSIS
     Dosage: 20 UG, DAILY (1/D)
     Dates: start: 201001

REACTIONS (9)
  - Deafness neurosensory [Unknown]
  - Dysuria [Unknown]
  - Hearing impaired [Unknown]
  - Sudden hearing loss [Unknown]
  - Malaise [Unknown]
  - Bladder spasm [Unknown]
  - Hallucination [Unknown]
  - Eye disorder [Not Recovered/Not Resolved]
  - Vision blurred [Unknown]

NARRATIVE: CASE EVENT DATE: 201101
